FAERS Safety Report 8875181 (Version 2)
Quarter: 2015Q3

REPORT INFORMATION
  Report Type: Report from Study
  Country: US (occurrence: US)
  Receive Date: 20121023
  Receipt Date: 20150903
  Transmission Date: 20151125
  Serious: Yes (Death)
  Sender: FDA-Public Use
  Company Number: US-ROCHE-1136073

PATIENT
  Age: 60 Year
  Sex: Female

DRUGS (4)
  1. RAPTIVA [Suspect]
     Active Substance: EFALIZUMAB
     Indication: PUSTULAR PSORIASIS
  2. RAPTIVA [Suspect]
     Active Substance: EFALIZUMAB
     Indication: PSORIASIS
     Route: 065
  3. RAPTIVA [Suspect]
     Active Substance: EFALIZUMAB
     Indication: PUSTULAR PSORIASIS
     Route: 065
  4. PUVA [Concomitant]
     Active Substance: PSORALEN

REACTIONS (4)
  - Haemorrhage [Unknown]
  - Death [Fatal]
  - Skin fissures [Unknown]
  - Pain [Unknown]

NARRATIVE: CASE EVENT DATE: 20090807
